FAERS Safety Report 7373110-7 (Version None)
Quarter: 2011Q1

REPORT INFORMATION
  Report Type: 
  Country: None (occurrence: None)
  Receive Date: 20110324
  Receipt Date: 20110324
  Transmission Date: 20110831
  Serious: Yes (Other)
  Sender: FDA-Public Use
  Company Number: IT-ABBOTT-11P-083-0697724-00

PATIENT
  Age: 45 Year
  Sex: Male
  Weight: 80 kg

DRUGS (5)
  1. METHYLPREDNISOLONE [Concomitant]
     Indication: NEPHROTIC SYNDROME
     Dosage: 0.5 MG/KG, 3 PULSES (1G EACH)
  2. PREDNISONE [Concomitant]
     Indication: NEPHROTIC SYNDROME
     Dosage: 10 MG/DAY
     Route: 048
  3. CYCLOPHOSPHAMIDE [Concomitant]
     Indication: NEPHROTIC SYNDROME
     Route: 048
  4. CYCLOSPORINE [Suspect]
     Indication: NEPHROTIC SYNDROME
  5. CYCLOSPORINE [Suspect]
     Indication: FOCAL SEGMENTAL GLOMERULOSCLEROSIS

REACTIONS (5)
  - HYPERTENSION [None]
  - THROMBOCYTOPENIA [None]
  - HAEMOLYTIC URAEMIC SYNDROME [None]
  - RENAL IMPAIRMENT [None]
  - HAEMOLYTIC ANAEMIA [None]
